FAERS Safety Report 5282936-5 (Version None)
Quarter: 2007Q2

REPORT INFORMATION
  Report Type: 
  Country: None (occurrence: None)
  Receive Date: 20070402
  Receipt Date: 20070320
  Transmission Date: 20071010
  Serious: Yes (Other)
  Sender: FDA-Public Use
  Company Number: PHMT2007CA00517

PATIENT
  Age: 61 Year
  Sex: Male
  Weight: 78.004 kg

DRUGS (2)
  1. DIOVAN HCT [Suspect]
     Indication: HYPERTENSION
     Dosage: 160MG/12.5MG
     Route: 048
     Dates: start: 20060901, end: 20070120
  2. CENTRUM [Concomitant]
     Route: 048

REACTIONS (3)
  - HAEMATOCHEZIA [None]
  - POLYP COLORECTAL [None]
  - RECTAL HAEMORRHAGE [None]
